FAERS Safety Report 13733977 (Version 1)
Quarter: 2017Q3

REPORT INFORMATION
  Report Type: Report from Study
  Country: None (occurrence: US)
  Receive Date: 20170708
  Receipt Date: 20170708
  Transmission Date: 20171127
  Serious: Yes (Hospitalization, Disabling, Other)
  Sender: FDA-Public Use
  Company Number: US-ABBVIE-17P-163-2026923-00

PATIENT
  Age: 37 Year
  Sex: Female
  Weight: 99.88 kg

DRUGS (10)
  1. SYMBICORT [Concomitant]
     Active Substance: BUDESONIDE\FORMOTEROL FUMARATE DIHYDRATE
     Indication: ASTHMA
     Route: 055
  2. LUPRON DEPOT [Suspect]
     Active Substance: LEUPROLIDE ACETATE
     Indication: ENDOMETRIOSIS
     Route: 030
     Dates: start: 2004, end: 2007
  3. MORPHINE SULFATE. [Concomitant]
     Active Substance: MORPHINE SULFATE
     Indication: PRODUCT USED FOR UNKNOWN INDICATION
  4. MORPHINE SULFATE EXTENDED RELEASE [Concomitant]
     Active Substance: MORPHINE SULFATE
     Indication: PRODUCT USED FOR UNKNOWN INDICATION
  5. CIPROFLOXACIN. [Concomitant]
     Active Substance: CIPROFLOXACIN
     Indication: PRODUCT USED FOR UNKNOWN INDICATION
  6. RELPAX [Concomitant]
     Active Substance: ELETRIPTAN HYDROBROMIDE
     Indication: MIGRAINE
  7. SINGULAIR [Concomitant]
     Active Substance: MONTELUKAST SODIUM
     Indication: ASTHMA
  8. MORPHINE [Concomitant]
     Active Substance: MORPHINE
     Indication: PRODUCT USED FOR UNKNOWN INDICATION
  9. ZYRTEC [Concomitant]
     Active Substance: CETIRIZINE HYDROCHLORIDE
     Indication: PRODUCT USED FOR UNKNOWN INDICATION
  10. DUONEB [Concomitant]
     Active Substance: ALBUTEROL SULFATE\IPRATROPIUM BROMIDE
     Indication: ASTHMA
     Route: 055

REACTIONS (41)
  - Consciousness fluctuating [Recovered/Resolved]
  - Ligament sprain [Recovered/Resolved]
  - Intervertebral disc protrusion [Recovered/Resolved]
  - White blood cell count increased [Not Recovered/Not Resolved]
  - Neck pain [Not Recovered/Not Resolved]
  - Kidney infection [Not Recovered/Not Resolved]
  - Hypokinesia [Not Recovered/Not Resolved]
  - Gait disturbance [Recovering/Resolving]
  - Pre-eclampsia [Recovered/Resolved]
  - Back pain [Recovered/Resolved]
  - Nerve injury [Not Recovered/Not Resolved]
  - Vaginal haemorrhage [Recovered/Resolved]
  - Fall [Recovered/Resolved]
  - Bladder pain [Recovered/Resolved]
  - Abdominal pain upper [Recovered/Resolved]
  - Nervous system disorder [Not Recovered/Not Resolved]
  - Pyrexia [Recovered/Resolved]
  - Hypertension [Not Recovered/Not Resolved]
  - Procedural haemorrhage [Recovered/Resolved]
  - Road traffic accident [Recovered/Resolved with Sequelae]
  - Intervertebral disc protrusion [Recovered/Resolved]
  - Pain [Not Recovered/Not Resolved]
  - Muscle atrophy [Not Recovered/Not Resolved]
  - Cystitis [Recovered/Resolved]
  - Nephritis [Not Recovered/Not Resolved]
  - Vomiting [Recovered/Resolved]
  - Decreased appetite [Not Recovered/Not Resolved]
  - Asthenia [Not Recovered/Not Resolved]
  - Exposure during pregnancy [Unknown]
  - Paralysis [Recovered/Resolved]
  - Cystitis [Recovered/Resolved]
  - Urinary retention [Recovered/Resolved]
  - Hypoaesthesia [Not Recovered/Not Resolved]
  - Abdominal pain lower [Recovered/Resolved]
  - Ovarian cyst ruptured [Recovered/Resolved]
  - Cystitis [Not Recovered/Not Resolved]
  - Asthma [Recovered/Resolved]
  - Cystitis [Recovered/Resolved]
  - Headache [Not Recovered/Not Resolved]
  - Skin infection [Recovered/Resolved]
  - Ovarian cyst [Recovered/Resolved]

NARRATIVE: CASE EVENT DATE: 2005
